FAERS Safety Report 9487511 (Version 2)
Quarter: 2013Q3

REPORT INFORMATION
  Report Type: Spontaneous
  Country: US (occurrence: US)
  Receive Date: 20130725
  Receipt Date: 20130725
  Transmission Date: 20140515
  Serious: Yes (Hospitalization)
  Sender: FDA-Public Use
  Company Number: US-GLAXOSMITHKLINE-A0791431A

PATIENT
  Age: 64 Year
  Sex: Male

DRUGS (10)
  1. AVANDIA [Suspect]
     Indication: TYPE 2 DIABETES MELLITUS
     Dosage: 4MG PER DAY
     Route: 048
     Dates: start: 20040630, end: 20060317
  2. METFORMIN [Concomitant]
  3. SIMVASTATIN [Concomitant]
  4. SALSALATE [Concomitant]
  5. OMEPRAZOL [Concomitant]
  6. METOPROLOL SUCCINATE [Concomitant]
  7. LISINOPRIL [Concomitant]
  8. INSULIN [Concomitant]
  9. GLYBURIDE [Concomitant]
  10. CYANOCOBALAMIN [Concomitant]

REACTIONS (1)
  - Cardiac failure congestive [Not Recovered/Not Resolved]
